FAERS Safety Report 8074978-1 (Version None)
Quarter: 2012Q1

REPORT INFORMATION
  Report Type: 
  Country: None (occurrence: None)
  Receive Date: 20120127
  Receipt Date: 20120120
  Transmission Date: 20120608
  Serious: Yes (Hospitalization)
  Sender: FDA-Public Use
  Company Number: US-BIOGENIDEC-2012BI000017

PATIENT
  Age: 66 Year
  Sex: Female

DRUGS (2)
  1. COPAXONE [Concomitant]
     Indication: MULTIPLE SCLEROSIS
     Dates: end: 20111201
  2. AVONEX [Suspect]
     Indication: MULTIPLE SCLEROSIS
     Route: 030
     Dates: start: 20000205

REACTIONS (2)
  - MUSCULAR WEAKNESS [None]
  - SURGERY [None]
